FAERS Safety Report 7532082-2 (Version None)
Quarter: 2011Q2

REPORT INFORMATION
  Report Type: 
  Country: None (occurrence: None)
  Receive Date: 20110608
  Receipt Date: 20110604
  Transmission Date: 20111010
  Serious: No
  Sender: FDA-Public Use
  Company Number: US-PFIZER INC-2011122162

PATIENT
  Sex: Male
  Weight: 38.549 kg

DRUGS (1)
  1. GENOTROPIN [Suspect]
     Indication: GROWTH HORMONE DEFICIENCY
     Dosage: 2.2 MG, 1X/DAY
     Dates: start: 20110528

REACTIONS (2)
  - NAUSEA [None]
  - HEADACHE [None]
